FAERS Safety Report 10703740 (Version 1)
Quarter: 2015Q1

REPORT INFORMATION
  Report Type: Report from Study
  Country: DE (occurrence: None)
  Receive Date: 20150108
  Receipt Date: 20150108
  Transmission Date: 20150721
  Serious: Yes (Other)
  Sender: FDA-Public Use
  Company Number: DE-001492

PATIENT
  Age: 46 Year
  Sex: Male

DRUGS (1)
  1. TEDUGLUTIDE [Suspect]
     Active Substance: TEDUGLUTIDE
     Route: 058
     Dates: start: 20110727, end: 20140521

REACTIONS (11)
  - Lymphocyte count decreased [None]
  - Aspartate aminotransferase increased [None]
  - Blood lactate dehydrogenase increased [None]
  - Eosinophil count increased [None]
  - Haemoglobin decreased [None]
  - Blood bilirubin increased [None]
  - Alanine aminotransferase increased [None]
  - Haematocrit decreased [None]
  - Platelet count decreased [None]
  - Hepatitis toxic [None]
  - Red cell distribution width increased [None]

NARRATIVE: CASE EVENT DATE: 20140411
